FAERS Safety Report 5364841-9 (Version None)
Quarter: 2007Q2

REPORT INFORMATION
  Report Type: 
  Country: None (occurrence: None)
  Receive Date: 20070621
  Receipt Date: 20070612
  Transmission Date: 20071010
  Serious: Yes (Hospitalization)
  Sender: FDA-Public Use
  Company Number: PHHO2007GB07648

PATIENT
  Age: 67 Year
  Sex: Female
  Weight: 70 kg

DRUGS (4)
  1. MYFORTIC [Suspect]
     Indication: RENAL TRANSPLANT
     Dosage: 720 MG, BID
     Route: 048
     Dates: start: 20070328, end: 20070424
  2. NEORAL [Concomitant]
     Indication: RENAL TRANSPLANT
     Dosage: 150 MG DAILY
     Route: 048
     Dates: start: 20060802
  3. OMEPRAZOLE [Concomitant]
  4. BISOPROLOL FUMARATE [Concomitant]

REACTIONS (2)
  - DIARRHOEA [None]
  - MALAISE [None]
